FAERS Safety Report 23333199 (Version 2)
Quarter: 2024Q1

REPORT INFORMATION
  Report Type: Spontaneous
  Country: US (occurrence: US)
  Receive Date: 20231222
  Receipt Date: 20240123
  Transmission Date: 20240409
  Serious: No
  Sender: FDA-Public Use
  Company Number: US-PFIZER INC-PV202300200984

PATIENT
  Age: 66 Year
  Sex: Female

DRUGS (1)
  1. XELJANZ XR [Suspect]
     Active Substance: TOFACITINIB CITRATE
     Indication: Rheumatoid arthritis
     Dosage: 11 MG, 1X/DAY
     Route: 048

REACTIONS (10)
  - Nasopharyngitis [Recovered/Resolved]
  - Alopecia [Unknown]
  - Sinusitis [Unknown]
  - Condition aggravated [Unknown]
  - Cough [Unknown]
  - Facial pain [Unknown]
  - Headache [Unknown]
  - Lower respiratory tract congestion [Unknown]
  - Hypoacusis [Unknown]
  - Off label use [Unknown]

NARRATIVE: CASE EVENT DATE: 20230101
